FAERS Safety Report 17912009 (Version 1)
Quarter: 2020Q2

REPORT INFORMATION
  Report Type: Spontaneous
  Country: US (occurrence: US)
  Receive Date: 20200618
  Receipt Date: 20200618
  Transmission Date: 20200714
  Serious: Yes (Hospitalization)
  Sender: FDA-Public Use
  Company Number: US-MICRO LABS LIMITED-ML2020-01800

PATIENT
  Age: 88 Year
  Sex: Male

DRUGS (3)
  1. ALTEPLASE. [Suspect]
     Active Substance: ALTEPLASE
     Dosage: ADMINISTERED THROUGH THE LEFT ANTECUBITAL FOSSA FOR PRESUMED ISCHEMIC STROKE
  2. LEVETIRACETAM. [Suspect]
     Active Substance: LEVETIRACETAM
     Indication: SEIZURE PROPHYLAXIS
     Route: 042
  3. NICARDIPINE [Suspect]
     Active Substance: NICARDIPINE
     Indication: BLOOD PRESSURE INCREASED
     Dosage: THROUGH THE RIGHT ANTECUBITAL FOSSA FOR 37 MINUTES

REACTIONS (1)
  - Administration site extravasation [Recovered/Resolved]
